FAERS Safety Report 11508022 (Version 1)
Quarter: 2015Q3

REPORT INFORMATION
  Report Type: Spontaneous
  Country: US (occurrence: US)
  Receive Date: 20150903
  Receipt Date: 20150903
  Transmission Date: 20151125
  Serious: No
  Sender: FDA-Public Use
  Company Number: US-ELI_LILLY_AND_COMPANY-US200911001199

PATIENT
  Age: 76 Year
  Sex: Male

DRUGS (7)
  1. AVAPRO [Concomitant]
     Active Substance: IRBESARTAN
  2. HUMALOG [Suspect]
     Active Substance: INSULIN LISPRO
     Dosage: UNK, AS NEEDED
  3. HUMALOG [Suspect]
     Active Substance: INSULIN LISPRO
     Dosage: UNK, AS NEEDED
  4. HUMALOG [Suspect]
     Active Substance: INSULIN LISPRO
     Dosage: UNK, AS NEEDED
  5. LANTUS [Concomitant]
     Active Substance: INSULIN GLARGINE
  6. AMARYL [Concomitant]
     Active Substance: GLIMEPIRIDE
  7. VITAMINS [Concomitant]
     Active Substance: VITAMINS

REACTIONS (2)
  - Poor quality drug administered [Unknown]
  - Blood glucose increased [Not Recovered/Not Resolved]

NARRATIVE: CASE EVENT DATE: 2008
